FAERS Safety Report 14948850 (Version 3)
Quarter: 2021Q4

REPORT INFORMATION
  Report Type: Report from Study
  Country: PT (occurrence: PT)
  Receive Date: 20180529
  Receipt Date: 20211118
  Transmission Date: 20220304
  Serious: Yes (Life-Threatening, Hospitalization, Other)
  Sender: FDA-Public Use
  Company Number: PT-SHIRE-PT201820202

PATIENT
  Sex: Male

DRUGS (2)
  1. IDURSULFASE [Suspect]
     Active Substance: IDURSULFASE
     Indication: Mucopolysaccharidosis II
     Dosage: 0.5 MG/KG, 1X/WEEK
     Route: 065
     Dates: start: 20090527, end: 20170705
  2. IDURSULFASE [Suspect]
     Active Substance: IDURSULFASE
     Dosage: 0.5 MG/KG, 1X/WEEK
     Route: 042
     Dates: start: 20090527, end: 20170705

REACTIONS (3)
  - Sepsis [Recovered/Resolved with Sequelae]
  - Gastrostomy [Unknown]
  - Gastrointestinal surgery [Unknown]

NARRATIVE: CASE EVENT DATE: 20170626
